FAERS Safety Report 6312316-2 (Version None)
Quarter: 2009Q3

REPORT INFORMATION
  Report Type: 
  Country: None (occurrence: None)
  Receive Date: 20090817
  Receipt Date: 20090806
  Transmission Date: 20100115
  Serious: Yes (Other)
  Sender: FDA-Public Use
  Company Number: CN-ROCHE-522855

PATIENT
  Sex: Female
  Weight: 57 kg

DRUGS (13)
  1. XELODA [Suspect]
     Indication: COLON CANCER
     Route: 048
     Dates: start: 20020101, end: 20050101
  2. XELODA [Suspect]
     Route: 048
     Dates: start: 20060101, end: 20060601
  3. XELODA [Suspect]
     Route: 048
     Dates: start: 20070919, end: 20080501
  4. UNSPECIFIED DRUG [Concomitant]
     Indication: COLON CANCER
     Dosage: THE TRADE NAME WAS REPORTED AS KANGLAITE.
     Route: 041
     Dates: start: 20020101, end: 20050101
  5. UNSPECIFIED DRUG [Concomitant]
     Route: 041
     Dates: start: 20060101, end: 20060601
  6. UNSPECIFIED DRUG [Concomitant]
     Route: 041
     Dates: start: 20070908, end: 20080501
  7. UNSPECIFIED DRUG [Concomitant]
     Dosage: THE TRADE NAME WAS REPORTED AS AIDI.
     Route: 041
     Dates: start: 20020101, end: 20050101
  8. UNSPECIFIED DRUG [Concomitant]
     Route: 041
     Dates: start: 20060101, end: 20060601
  9. UNSPECIFIED DRUG [Concomitant]
     Route: 041
     Dates: start: 20070908, end: 20080501
  10. UNSPECIFIED DRUG [Concomitant]
     Dosage: THE TRADE NAME WAS REPORTED AS FUFANGBANMAO.
     Dates: start: 20020101, end: 20050101
  11. UNSPECIFIED DRUG [Concomitant]
     Dates: start: 20060101, end: 20060601
  12. UNSPECIFIED DRUG [Concomitant]
     Dates: start: 20070908, end: 20080501
  13. THYMUS PEPTIDES [Concomitant]
     Indication: IMMUNE ENHANCEMENT THERAPY
     Route: 041
     Dates: start: 20070908

REACTIONS (12)
  - ADNEXA UTERI CYST [None]
  - DECREASED APPETITE [None]
  - DIZZINESS [None]
  - EXTERNAL EAR PAIN [None]
  - HEADACHE [None]
  - HEPATIC MASS [None]
  - METASTASES TO LIVER [None]
  - MUSCULOSKELETAL PAIN [None]
  - ORAL HERPES [None]
  - RED BLOOD CELL COUNT DECREASED [None]
  - RHEUMATOID FACTOR INCREASED [None]
  - TUMOUR MARKER INCREASED [None]
